FAERS Safety Report 5895334-8 (Version None)
Quarter: 2008Q3

REPORT INFORMATION
  Report Type: 
  Country: None (occurrence: None)
  Receive Date: 20080811
  Receipt Date: 20080811
  Transmission Date: 20090109
  Serious: No
  Sender: FDA-Public Use
  Company Number: None

PATIENT
  Sex: Female
  Weight: 60.3284 kg

DRUGS (1)
  1. CREST PRO-HEALTH NIGHT RINSE PROCTOR + GAMBLE [Suspect]
     Indication: DENTAL DISORDER PROPHYLAXIS
     Dosage: 2 OUNCES NIGHTLY PO
     Route: 048
     Dates: start: 20080701, end: 20080806

REACTIONS (1)
  - TOOTH DISCOLOURATION [None]
